FAERS Safety Report 14121535 (Version 2)
Quarter: 2017Q4

REPORT INFORMATION
  Report Type: Spontaneous
  Country: US (occurrence: US)
  Receive Date: 20171024
  Receipt Date: 20171121
  Transmission Date: 20180321
  Serious: No
  Sender: FDA-Public Use
  Company Number: US-MYLANLABS-2017M1062727

PATIENT
  Sex: Male

DRUGS (4)
  1. NOVACORT [Concomitant]
     Active Substance: HYDROCORTISONE ACETATE\PRAMOXINE
     Indication: PRODUCT USED FOR UNKNOWN INDICATION
     Dosage: UNK, QD (MORNING)
  2. AZELASTINE. [Concomitant]
     Active Substance: AZELASTINE HYDROCHLORIDE
     Indication: SEASONAL ALLERGY
     Dosage: UNK
  3. AZELASTINE. [Concomitant]
     Active Substance: AZELASTINE HYDROCHLORIDE
     Dosage: UNK
  4. ASTEPRO [Suspect]
     Active Substance: AZELASTINE HYDROCHLORIDE
     Indication: SEASONAL ALLERGY
     Dosage: 2 SPRAYS BID
     Route: 045
     Dates: start: 20170923, end: 20170923

REACTIONS (2)
  - Retching [Unknown]
  - Dysgeusia [Recovered/Resolved]

NARRATIVE: CASE EVENT DATE: 20170923
